FAERS Safety Report 20062682 (Version 12)
Quarter: 2025Q1

REPORT INFORMATION
  Report Type: Report from Study
  Country: CA (occurrence: CA)
  Receive Date: 20211112
  Receipt Date: 20250321
  Transmission Date: 20250409
  Serious: Yes (Other)
  Sender: TAKEDA
  Company Number: CA-TAKEDA-2021TUS069850

PATIENT
  Age: 77 Year
  Sex: Female

DRUGS (15)
  1. VEDOLIZUMAB [Suspect]
     Active Substance: VEDOLIZUMAB
     Indication: Colitis ulcerative
  2. VEDOLIZUMAB [Suspect]
     Active Substance: VEDOLIZUMAB
  3. VEDOLIZUMAB [Suspect]
     Active Substance: VEDOLIZUMAB
  4. VEDOLIZUMAB [Suspect]
     Active Substance: VEDOLIZUMAB
  5. VEDOLIZUMAB [Suspect]
     Active Substance: VEDOLIZUMAB
  6. VEDOLIZUMAB [Suspect]
     Active Substance: VEDOLIZUMAB
  7. VEDOLIZUMAB [Suspect]
     Active Substance: VEDOLIZUMAB
     Dosage: 300 MILLIGRAM, Q4WEEKS
     Dates: start: 20250318
  8. PREDNISONE [Concomitant]
     Active Substance: PREDNISONE
     Dates: start: 20211110, end: 20220101
  9. Salofalk [Concomitant]
  10. MESALAMINE [Concomitant]
     Active Substance: MESALAMINE
  11. TICAGRELOR [Concomitant]
     Active Substance: TICAGRELOR
     Dates: start: 20220929, end: 20231116
  12. ASPIRIN [Concomitant]
     Active Substance: ASPIRIN
  13. BISOPROLOL [Concomitant]
     Active Substance: BISOPROLOL
     Dates: start: 20220929, end: 20230319
  14. ROSUVASTATIN [Concomitant]
     Active Substance: ROSUVASTATIN
  15. PERINDOPRIL [Concomitant]
     Active Substance: PERINDOPRIL

REACTIONS (22)
  - Colitis ulcerative [Not Recovered/Not Resolved]
  - Abdominal discomfort [Not Recovered/Not Resolved]
  - Abdominal distension [Not Recovered/Not Resolved]
  - Haematochezia [Unknown]
  - Rectal haemorrhage [Unknown]
  - Rhinorrhoea [Unknown]
  - Arthralgia [Unknown]
  - Fatigue [Unknown]
  - Feeling abnormal [Unknown]
  - Diverticulum intestinal [Unknown]
  - Therapeutic reaction time decreased [Unknown]
  - Viral upper respiratory tract infection [Unknown]
  - Off label use [Unknown]
  - Feeling cold [Unknown]
  - Decreased appetite [Unknown]
  - Chills [Unknown]
  - Constipation [Unknown]
  - Headache [Unknown]
  - Nausea [Unknown]
  - Cough [Unknown]
  - Pyrexia [Unknown]
  - Influenza [Unknown]

NARRATIVE: CASE EVENT DATE: 20250318
